FAERS Safety Report 7738810-5 (Version None)
Quarter: 2011Q3

REPORT INFORMATION
  Report Type: 
  Country: None (occurrence: None)
  Receive Date: 20110909
  Receipt Date: 20110830
  Transmission Date: 20111222
  Serious: Yes (Hospitalization)
  Sender: FDA-Public Use
  Company Number: BR-BRISTOL-MYERS SQUIBB COMPANY-16026817

PATIENT
  Age: 80 Year
  Sex: Female
  Weight: 60 kg

DRUGS (6)
  1. APROZIDE [Concomitant]
  2. CELEBREX [Concomitant]
  3. MEGESTROL ACETATE [Suspect]
     Indication: LUNG NEOPLASM
     Dosage: INTER ON: 03-AUG-2011
     Route: 048
     Dates: start: 20110101
  4. MEGESTROL ACETATE [Suspect]
     Indication: HEPATIC NEOPLASM
     Dosage: INTER ON: 03-AUG-2011
     Route: 048
     Dates: start: 20110101
  5. TRAMADOL HYDROCHLORIDE AND ACETAMINOPHEN [Concomitant]
  6. LEVOTHYROXINE SODIUM [Concomitant]
     Dosage: STARTED 2 YEARS AGO

REACTIONS (1)
  - GASTROINTESTINAL NEOPLASM [None]
